FAERS Safety Report 17396189 (Version 1)
Quarter: 2020Q1

REPORT INFORMATION
  Report Type: Spontaneous
  Country: US (occurrence: US)
  Receive Date: 20200207
  Receipt Date: 20200207
  Transmission Date: 20200409
  Serious: No
  Sender: FDA-Public Use
  Company Number: None

PATIENT
  Age: 38 Year
  Sex: Female
  Weight: 89.1 kg

DRUGS (7)
  1. SPRAVATO [Suspect]
     Active Substance: ESKETAMINE
     Indication: DEPRESSION
     Dosage: ?          QUANTITY:3 PUFF(S);OTHER FREQUENCY:SPECIFIC PROTOCOL;?
     Route: 055
  2. DESAPRIMINE [Concomitant]
  3. ATIVAN [Concomitant]
     Active Substance: LORAZEPAM
  4. FLUOXETINE [Concomitant]
     Active Substance: FLUOXETINE HYDROCHLORIDE
  5. LEVOTHYROXINE. [Concomitant]
     Active Substance: LEVOTHYROXINE
  6. ABILIFY [Concomitant]
     Active Substance: ARIPIPRAZOLE
  7. DEPLIN [Concomitant]
     Active Substance: LEVOMEFOLATE CALCIUM

REACTIONS (3)
  - Alanine aminotransferase abnormal [None]
  - Blood alkaline phosphatase abnormal [None]
  - Aspartate aminotransferase abnormal [None]

NARRATIVE: CASE EVENT DATE: 20200128
